FAERS Safety Report 22354786 (Version 2)
Quarter: 2023Q2

REPORT INFORMATION
  Report Type: Report from Study
  Country: SE (occurrence: None)
  Receive Date: 20230523
  Receipt Date: 20230608
  Transmission Date: 20230721
  Serious: Yes (Hospitalization)
  Sender: FDA-Public Use
  Company Number: SE-ROCHE-3350968

PATIENT
  Age: 64 Year
  Sex: Female
  Weight: 83.6 kg

DRUGS (1)
  1. ATEZOLIZUMAB [Suspect]
     Active Substance: ATEZOLIZUMAB
     Indication: Malignant melanoma
     Dosage: THE LAST DOSE OF ATEZOLIZUMAB PRIOR TO THE ONSET OF THE SAE WAS ON 19/APR/2023.
     Route: 041
     Dates: start: 20221124

REACTIONS (1)
  - Non-cardiac chest pain [Recovered/Resolved]

NARRATIVE: CASE EVENT DATE: 20230502
